FAERS Safety Report 23183712 (Version 1)
Quarter: 2023Q4

REPORT INFORMATION
  Report Type: Spontaneous
  Country: None (occurrence: US)
  Receive Date: 20231114
  Receipt Date: 20231114
  Transmission Date: 20240109
  Serious: No
  Sender: FDA-Public Use
  Company Number: US-Harrow Eye-2148280

PATIENT
  Sex: Female

DRUGS (1)
  1. ILEVRO [Suspect]
     Active Substance: NEPAFENAC
     Indication: Product used for unknown indication

REACTIONS (2)
  - Product prescribing error [Unknown]
  - Incorrect dose administered [Unknown]
